FAERS Safety Report 11598700 (Version 1)
Quarter: 2015Q3

REPORT INFORMATION
  Report Type: Spontaneous
  Country: US (occurrence: US)
  Receive Date: 20150916
  Receipt Date: 20150916
  Transmission Date: 20151125
  Serious: No
  Sender: FDA-Public Use
  Company Number: US-ELI_LILLY_AND_COMPANY-US200712000271

PATIENT
  Age: 61 Year
  Sex: Female

DRUGS (3)
  1. FORTEO [Suspect]
     Active Substance: TERIPARATIDE
     Indication: OSTEOPOROSIS
     Dosage: UNK, UNK
     Dates: start: 200703, end: 200706
  2. FORTEO [Suspect]
     Active Substance: TERIPARATIDE
     Dosage: UNK, QOD
     Dates: start: 200706, end: 200707
  3. FORTEO [Suspect]
     Active Substance: TERIPARATIDE
     Dates: start: 200708, end: 200710

REACTIONS (1)
  - Musculoskeletal pain [Recovered/Resolved]

NARRATIVE: CASE EVENT DATE: 200706
